FAERS Safety Report 14527760 (Version 1)
Quarter: 2018Q1

REPORT INFORMATION
  Report Type: Report from Study
  Country: US (occurrence: US)
  Receive Date: 20180213
  Receipt Date: 20180213
  Transmission Date: 20180509
  Serious: Yes (Hospitalization)
  Sender: FDA-Public Use
  Company Number: US-ACTELION-A-NJ2018-167244

PATIENT
  Age: 81 Year
  Sex: Male

DRUGS (15)
  1. POTASSIUM CHLORIDE. [Concomitant]
     Active Substance: POTASSIUM CHLORIDE
  2. FUROSEMIDE. [Concomitant]
     Active Substance: FUROSEMIDE
  3. ASPIRIN. [Concomitant]
     Active Substance: ASPIRIN
  4. OCUVITE [Concomitant]
     Active Substance: VITAMINS
  5. TOUJEO [Concomitant]
     Active Substance: INSULIN GLARGINE
  6. LORAZEPAM. [Concomitant]
     Active Substance: LORAZEPAM
  7. MULTIVITAMIN [Concomitant]
     Active Substance: VITAMINS
  8. DOXAZOSIN [Concomitant]
     Active Substance: DOXAZOSIN\DOXAZOSIN MESYLATE
  9. SILDENAFIL. [Concomitant]
     Active Substance: SILDENAFIL
  10. ALLOPURINOL. [Concomitant]
     Active Substance: ALLOPURINOL
  11. GLUCOSAMINE [Concomitant]
     Active Substance: GLUCOSAMINE
  12. OPSUMIT [Suspect]
     Active Substance: MACITENTAN
     Indication: PULMONARY ARTERIAL HYPERTENSION
     Dosage: 10 MG, QD
     Route: 048
     Dates: start: 20140825
  13. GLIMEPIRIDE. [Concomitant]
     Active Substance: GLIMEPIRIDE
  14. ATORVASTATIN [Concomitant]
     Active Substance: ATORVASTATIN
  15. PRILOSEC [Concomitant]
     Active Substance: OMEPRAZOLE MAGNESIUM

REACTIONS (3)
  - Muscle strain [Recovered/Resolved]
  - Drug dose omission [Recovered/Resolved]
  - Pain in extremity [Recovered/Resolved]

NARRATIVE: CASE EVENT DATE: 20180111
